FAERS Safety Report 6080153-2 (Version None)
Quarter: 2009Q1

REPORT INFORMATION
  Report Type: 
  Country: None (occurrence: None)
  Receive Date: 20090217
  Receipt Date: 20090209
  Transmission Date: 20090719
  Serious: Yes (Hospitalization, Other)
  Sender: FDA-Public Use
  Company Number: DE-BAYER-200910736GPV

PATIENT
  Sex: Female

DRUGS (3)
  1. NITRENDIPIN [Suspect]
     Indication: DRUG USE FOR UNKNOWN INDICATION
     Dosage: TOTAL DAILY DOSE: 10 MG  UNIT DOSE: 10 MG
     Route: 048
     Dates: start: 20081028, end: 20081031
  2. ASPIRIN [Suspect]
     Indication: DRUG USE FOR UNKNOWN INDICATION
     Dosage: TOTAL DAILY DOSE: 100 MG  UNIT DOSE: 100 MG
     Route: 048
     Dates: start: 20080901, end: 20081104
  3. CORDAREX [Suspect]
     Indication: DRUG USE FOR UNKNOWN INDICATION
     Dosage: AS USED: 200-200 MG  UNIT DOSE: 200 MG
     Route: 048
     Dates: start: 20080915, end: 20081105

REACTIONS (2)
  - LONG QT SYNDROME [None]
  - TORSADE DE POINTES [None]
